FAERS Safety Report 6355347-9 (Version None)
Quarter: 2009Q3

REPORT INFORMATION
  Report Type: 
  Country: None (occurrence: None)
  Receive Date: 20090914
  Receipt Date: 20090902
  Transmission Date: 20100115
  Serious: Yes (Other)
  Sender: FDA-Public Use
  Company Number: BR-PFIZER INC-2009229994

PATIENT
  Age: 59 Year

DRUGS (8)
  1. DETRUSITOL LA [Suspect]
     Indication: HYPERTONIC BLADDER
     Dosage: 4 MG, 1X/DAY
     Route: 048
     Dates: start: 20081201
  2. DIGOXIN [Concomitant]
     Dosage: UNK
  3. MILORIDE [Concomitant]
     Dosage: UNK
  4. INDAPAMIDE [Concomitant]
     Dosage: UNK
  5. ANCORON [Concomitant]
     Dosage: UNK
  6. SIMVASTATIN [Concomitant]
     Dosage: UNK
  7. PURAN T4 [Concomitant]
     Indication: HYPOTHYROIDISM
     Dosage: UNK
  8. METFORMED [Concomitant]
     Dosage: UNK

REACTIONS (5)
  - CARDIAC DISORDER [None]
  - DRUG INEFFECTIVE [None]
  - DYSPNOEA [None]
  - HEART RATE ABNORMAL [None]
  - MALAISE [None]
